FAERS Safety Report 12718556 (Version 1)
Quarter: 2016Q3

REPORT INFORMATION
  Report Type: Spontaneous
  Country: None (occurrence: IT)
  Receive Date: 20160906
  Receipt Date: 20160906
  Transmission Date: 20161109
  Serious: Yes (Disabling)
  Sender: FDA-Public Use
  Company Number: IT-ALLERGAN-1667738US

PATIENT
  Sex: Male

DRUGS (4)
  1. ABIRATERONE ACETATE [Suspect]
     Active Substance: ABIRATERONE ACETATE
     Indication: METASTATIC SALIVARY GLAND CANCER
     Dosage: 1000 MG, QD
  2. TRIPTORELIN PAMOATE UNK [Suspect]
     Active Substance: TRIPTORELIN PAMOATE
     Indication: METASTATIC SALIVARY GLAND CANCER
     Dosage: UNK UNK, Q MONTH
  3. PREDNISONE. [Suspect]
     Active Substance: PREDNISONE
     Indication: METASTATIC SALIVARY GLAND CANCER
     Dosage: 10 MG, QD
  4. BICALUTAMIDE. [Suspect]
     Active Substance: BICALUTAMIDE
     Indication: METASTATIC SALIVARY GLAND CANCER
     Dosage: 150 MG, QD

REACTIONS (4)
  - Bone pain [Recovered/Resolved]
  - Off label use [Unknown]
  - Dysstasia [Recovered/Resolved]
  - Walking disability [Recovered/Resolved]
